FAERS Safety Report 13051739 (Version 2)
Quarter: 2017Q1

REPORT INFORMATION
  Report Type: Spontaneous
  Country: US (occurrence: US)
  Receive Date: 20161221
  Receipt Date: 20170116
  Transmission Date: 20170428
  Serious: Yes (Other)
  Sender: FDA-Public Use
  Company Number: US-TARO-2016TAR01023

PATIENT
  Age: 74 Year
  Sex: Male
  Weight: 99.77 kg

DRUGS (5)
  1. METOPROLOL. [Concomitant]
     Active Substance: METOPROLOL
     Dosage: 50 MG, 2X/DAY
  2. LEVOTHYROXINE. [Concomitant]
     Active Substance: LEVOTHYROXINE
     Dosage: 150 ?G, 2X/DAY
  3. METFORMIN [Concomitant]
     Active Substance: METFORMIN HYDROCHLORIDE
     Dosage: 500 MG, 2X/DAY
  4. GLIPIZIDE. [Concomitant]
     Active Substance: GLIPIZIDE
     Dosage: 5 MG, 1X/DAY
  5. MAXIMUM STRENGTH DECONGESTANT NASAL SPRAY (OXYMETAZOLINE HCL 0.05% ) [Suspect]
     Active Substance: OXYMETAZOLINE HYDROCHLORIDE
     Indication: COUGH
     Dosage: 2 DOSAGE UNITS, ONCE
     Route: 045
     Dates: start: 20161209, end: 20161210

REACTIONS (5)
  - Upper respiratory tract infection [Recovering/Resolving]
  - Pyrexia [Recovered/Resolved]
  - Gait disturbance [Recovered/Resolved]
  - Vomiting [Recovered/Resolved]
  - Urinary incontinence [Recovered/Resolved]

NARRATIVE: CASE EVENT DATE: 201612
